FAERS Safety Report 5109083-7 (Version None)
Quarter: 2006Q3

REPORT INFORMATION
  Report Type: 
  Country: None (occurrence: None)
  Receive Date: 20060731
  Receipt Date: 20060505
  Transmission Date: 20061208
  Serious: No
  Sender: FDA-Public Use
  Company Number: 2006PV013366

PATIENT
  Age: 64 Year
  Sex: Female
  Weight: 122.4712 kg

DRUGS (9)
  1. BYETTA [Suspect]
     Indication: DIABETES MELLITUS NON-INSULIN-DEPENDENT
     Dosage: SEE IMAGE
     Route: 058
     Dates: start: 20051201, end: 20060301
  2. BYETTA [Suspect]
     Indication: DIABETES MELLITUS NON-INSULIN-DEPENDENT
     Dosage: SEE IMAGE
     Route: 058
     Dates: start: 20060301
  3. METFORMIN HCL [Concomitant]
  4. AVAPRO [Concomitant]
  5. GLYBURIDE [Concomitant]
  6. INDOCIN [Concomitant]
  7. CLARINEX [Concomitant]
  8. FLAX SEED OIL [Concomitant]
  9. CENTRUM SILVER [Concomitant]

REACTIONS (1)
  - DERMATITIS EXFOLIATIVE [None]
